FAERS Safety Report 4595229-6 (Version None)
Quarter: 2005Q1

REPORT INFORMATION
  Report Type: 
  Country: None (occurrence: None)
  Receive Date: 20050224
  Receipt Date: 20050211
  Transmission Date: 20050727
  Serious: Yes (Hospitalization, Other)
  Sender: FDA-Public Use
  Company Number: 2005017198

PATIENT
  Age: 37 Year
  Sex: Female
  Weight: 52.1637 kg

DRUGS (2)
  1. SOLU-MEDROL [Suspect]
     Indication: ARTHRITIS
     Dosage: 1 GRAM, SINGLE DOSE, INTRAVENOUS
     Route: 042
     Dates: start: 20041001, end: 20041001
  2. CALCIUM (CALCIUM) [Suspect]
     Indication: ILL-DEFINED DISORDER
     Dosage: ORAL
     Route: 048
     Dates: end: 20041014

REACTIONS (26)
  - ABDOMINAL DISTENSION [None]
  - ABDOMINAL PAIN [None]
  - AMENORRHOEA [None]
  - ARTHRALGIA [None]
  - ARTHRITIS [None]
  - ASTHENIA [None]
  - BLOOD URINE [None]
  - BLOOD URINE PRESENT [None]
  - BONE DISORDER [None]
  - BONE PAIN [None]
  - BREAST DISORDER [None]
  - CHEST DISCOMFORT [None]
  - CHEST PAIN [None]
  - DEPRESSION [None]
  - DYSPNOEA [None]
  - FEAR [None]
  - HYPERSENSITIVITY [None]
  - LIBIDO DECREASED [None]
  - LOCAL SWELLING [None]
  - MUSCLE ATROPHY [None]
  - OSTEOPENIA [None]
  - PHARYNGOLARYNGEAL PAIN [None]
  - SWELLING [None]
  - URETHRAL DISORDER [None]
  - UTERINE DISORDER [None]
  - VAGINAL DISORDER [None]
